FAERS Safety Report 12692780 (Version 1)
Quarter: 2016Q3

REPORT INFORMATION
  Report Type: Spontaneous
  Country: US (occurrence: US)
  Receive Date: 20160829
  Receipt Date: 20160829
  Transmission Date: 20161109
  Serious: No
  Sender: FDA-Public Use
  Company Number: US-DRREDDYS-USA/USA/15/0054178

PATIENT
  Sex: Female
  Weight: 72 kg

DRUGS (4)
  1. TIZANIDINE HYDROCHLORIDE. [Suspect]
     Active Substance: TIZANIDINE HYDROCHLORIDE
     Indication: FIBROMYALGIA
     Route: 048
     Dates: start: 201509
  2. NEURONTIN [Concomitant]
     Active Substance: GABAPENTIN
     Indication: FIBROMYALGIA
     Route: 048
     Dates: start: 201509
  3. LYRICA [Concomitant]
     Active Substance: PREGABALIN
     Indication: FIBROMYALGIA
     Route: 048
     Dates: start: 201509
  4. LYRICA [Concomitant]
     Active Substance: PREGABALIN
     Route: 048

REACTIONS (3)
  - No adverse event [Unknown]
  - Drug ineffective [Unknown]
  - Product quality issue [Unknown]
